FAERS Safety Report 12558604 (Version 1)
Quarter: 2016Q3

REPORT INFORMATION
  Report Type: Report from Study
  Country: US (occurrence: US)
  Receive Date: 20160714
  Receipt Date: 20160714
  Transmission Date: 20161109
  Serious: No
  Sender: FDA-Public Use
  Company Number: US-AMGEN-USASL2016089931

PATIENT
  Age: 52 Year
  Sex: Female

DRUGS (1)
  1. ENBREL [Suspect]
     Active Substance: ETANERCEPT
     Indication: PSORIASIS
     Dosage: UNK
     Route: 065

REACTIONS (9)
  - Chest discomfort [Recovered/Resolved]
  - Off label use [Unknown]
  - Asthma [Recovered/Resolved]
  - Therapeutic response decreased [Unknown]
  - Arthralgia [Unknown]
  - Ill-defined disorder [Unknown]
  - Hypersensitivity [Not Recovered/Not Resolved]
  - Eye infection [Unknown]
  - Nasopharyngitis [Recovered/Resolved]

NARRATIVE: CASE EVENT DATE: 201604
